FAERS Safety Report 9859110 (Version 3)
Quarter: 2014Q1

REPORT INFORMATION
  Report Type: Spontaneous
  Country: FR (occurrence: None)
  Receive Date: 20140129
  Receipt Date: 20140219
  Transmission Date: 20141002
  Serious: Yes (Hospitalization, Other)
  Sender: FDA-Public Use
  Company Number: AUR-APL-2014-00673

PATIENT
  Age: 54 Year
  Sex: Female

DRUGS (9)
  1. METFORMIN [Suspect]
     Indication: TYPE 2 DIABETES MELLITUS
     Dosage: 3000 MG (1000 MG, 3 IN 1 D), UNKNOWN
  2. ALENDRONIC ACID (ALENDRONIC ACID) [Concomitant]
  3. CLORAZEPATE DIPOTASSIUM (CLORAZEPATE DIPOTASSIUM) [Concomitant]
  4. FLUNARIZINE (FLUNARIZINE) [Concomitant]
  5. HYDROCORTISONE (HYDROCORTISONE) [Concomitant]
  6. FENOFIBRATE (FENOFIBRATE) (FENOFIBRATE) [Concomitant]
  7. METHOTREXATE (METHOTREXATE) [Concomitant]
  8. PANTOPRAZOLE (PANTOPRAZOLE) [Concomitant]
  9. PAROXETINE (PAROXETINE) [Concomitant]

REACTIONS (9)
  - Renal failure [None]
  - Acidosis [None]
  - Drug level increased [None]
  - Blood pressure diastolic decreased [None]
  - Body temperature decreased [None]
  - Confusional state [None]
  - Heart rate increased [None]
  - Haemodialysis [None]
  - Renal tubular disorder [None]
